FAERS Safety Report 22625261 (Version 1)
Quarter: 2023Q2

REPORT INFORMATION
  Report Type: Spontaneous
  Country: CN (occurrence: CN)
  Receive Date: 20230621
  Receipt Date: 20230621
  Transmission Date: 20230722
  Serious: Yes (Life-Threatening)
  Sender: FDA-Public Use
  Company Number: CN-JNJFOC-20230639209

PATIENT
  Age: 78 Year
  Sex: Female

DRUGS (5)
  1. DARZALEX [Suspect]
     Active Substance: DARATUMUMAB
     Indication: Plasma cell myeloma
     Dosage: 1000 MG DL
     Route: 041
     Dates: start: 20230415, end: 20230507
  2. DARZALEX [Suspect]
     Active Substance: DARATUMUMAB
     Dosage: 1000 MG DL
     Route: 041
     Dates: start: 20230415, end: 20230507
  3. POMALIDOMIDE [Suspect]
     Active Substance: POMALIDOMIDE
     Indication: Plasma cell myeloma
     Dosage: 4 MG D1-D14
     Route: 048
     Dates: start: 20230415, end: 20230507
  4. POMALIDOMIDE [Suspect]
     Active Substance: POMALIDOMIDE
     Route: 048
     Dates: start: 20230415, end: 20230428
  5. DEXAMETHASONE [Suspect]
     Active Substance: DEXAMETHASONE
     Indication: Plasma cell myeloma
     Dosage: 10 MG DL, D8,D15 AND D22
     Route: 065
     Dates: start: 20230415, end: 20230507

REACTIONS (1)
  - Myelosuppression [Unknown]

NARRATIVE: CASE EVENT DATE: 20230520
